FAERS Safety Report 5241938-5 (Version None)
Quarter: 2007Q1

REPORT INFORMATION
  Report Type: 
  Country: None (occurrence: None)
  Receive Date: 20070220
  Receipt Date: 20070213
  Transmission Date: 20070707
  Serious: Yes (Hospitalization)
  Sender: FDA-Public Use
  Company Number: FR-ROXANE LABORATORIES, INC-2007-BP-00722RO

PATIENT
  Age: 67 Year
  Sex: Male

DRUGS (4)
  1. LITHIUM CARBONATE [Suspect]
     Indication: BIPOLAR DISORDER
     Dates: start: 19960101, end: 20050101
  2. LEVOTHYROXINE SODIUM [Concomitant]
     Indication: HYPOTHYROIDISM
  3. BENAZEPRIL HYDROCHLORIDE [Concomitant]
     Indication: HYPERTENSION
  4. METFORMIN HCL [Concomitant]
     Indication: DIABETES MELLITUS NON-INSULIN-DEPENDENT

REACTIONS (4)
  - CEREBELLAR SYNDROME [None]
  - CREUTZFELDT-JAKOB DISEASE [None]
  - DEMENTIA [None]
  - MYOCLONUS [None]
